FAERS Safety Report 12842436 (Version 2)
Quarter: 2016Q4

REPORT INFORMATION
  Report Type: Spontaneous
  Country: FI (occurrence: FI)
  Receive Date: 20161013
  Receipt Date: 20161028
  Transmission Date: 20170207
  Serious: Yes (Life-Threatening, Hospitalization, Other)
  Sender: FDA-Public Use
  Company Number: FI-MACLEODS PHARMACEUTICALS US LTD-MAC2016003406

PATIENT

DRUGS (5)
  1. CLOZAPINE. [Suspect]
     Active Substance: CLOZAPINE
     Indication: ACCIDENTAL EXPOSURE TO PRODUCT
     Dosage: 300 MG, SINGLE
     Route: 065
  2. POTASSIUM CHLORIDE. [Suspect]
     Active Substance: POTASSIUM CHLORIDE
     Indication: ACCIDENTAL EXPOSURE TO PRODUCT
     Dosage: 1 G, SINGLE
     Route: 065
  3. OLANZAPINE. [Suspect]
     Active Substance: OLANZAPINE
     Indication: ACCIDENTAL EXPOSURE TO PRODUCT
     Dosage: 30 MG, SINGLE
     Route: 065
  4. WARFARIN [Suspect]
     Active Substance: WARFARIN
     Indication: ACCIDENTAL EXPOSURE TO PRODUCT
     Dosage: 5 MG, SINGLE
     Route: 065
  5. THEOPHYLLINE [Suspect]
     Active Substance: THEOPHYLLINE ANHYDROUS
     Indication: ACCIDENTAL EXPOSURE TO PRODUCT
     Dosage: 200 MG, SINGLE
     Route: 065

REACTIONS (8)
  - Accidental exposure to product [Recovered/Resolved]
  - Pyrexia [Recovered/Resolved]
  - Wrong patient received medication [Recovered/Resolved]
  - Condition aggravated [Recovered/Resolved]
  - Haematemesis [Recovered/Resolved]
  - Tachycardia [Recovered/Resolved]
  - Gastrointestinal necrosis [Recovered/Resolved]
  - Abdominal pain upper [Recovered/Resolved]
